FAERS Safety Report 9214466 (Version 6)
Quarter: 2013Q4

REPORT INFORMATION
  Report Type: Report from Study
  Country: JP (occurrence: JP)
  Receive Date: 20130405
  Receipt Date: 20131009
  Transmission Date: 20140711
  Serious: Yes (Disabling)
  Sender: FDA-Public Use
  Company Number: JP-ROCHE-1209012

PATIENT
  Age: 90 Year
  Sex: Male

DRUGS (4)
  1. RANIBIZUMAB [Suspect]
     Indication: AGE-RELATED MACULAR DEGENERATION
     Route: 050
     Dates: start: 20121206
  2. RANIBIZUMAB [Suspect]
     Route: 050
     Dates: start: 20130107
  3. RANIBIZUMAB [Suspect]
     Route: 050
     Dates: start: 20130206, end: 201302
  4. CRAVIT [Concomitant]
     Route: 065
     Dates: start: 201212, end: 201212

REACTIONS (1)
  - Haematoma [Recovered/Resolved with Sequelae]
